FAERS Safety Report 23488666 (Version 10)
Quarter: 2024Q4

REPORT INFORMATION
  Report Type: Spontaneous
  Country: US (occurrence: US)
  Receive Date: 20240206
  Receipt Date: 20241008
  Transmission Date: 20250115
  Serious: Yes (Other)
  Sender: BRISTOL MYERS SQUIBB
  Company Number: US-BRISTOL-MYERS SQUIBB COMPANY-2024-019350

PATIENT
  Age: 67 Year
  Sex: Female

DRUGS (3)
  1. CAMZYOS [Suspect]
     Active Substance: MAVACAMTEN
     Indication: Hypertrophic cardiomyopathy
     Route: 048
  2. CAMZYOS [Suspect]
     Active Substance: MAVACAMTEN
     Dosage: FREQUENCY: 1 CAPSULE ONCE DAILY
     Route: 048
  3. ASPIRIN [Concomitant]
     Active Substance: ASPIRIN
     Indication: Product used for unknown indication

REACTIONS (11)
  - Cartilage injury [Unknown]
  - Viral infection [Unknown]
  - Arthritis [Unknown]
  - Rhinitis [Unknown]
  - Nasopharyngitis [Unknown]
  - Fatigue [Unknown]
  - Product dose omission issue [Unknown]
  - Procedural pain [Unknown]
  - Swelling [Unknown]
  - Joint swelling [Unknown]
  - Post procedural swelling [Unknown]

NARRATIVE: CASE EVENT DATE: 20240101
